FAERS Safety Report 13239921 (Version 2)
Quarter: 2017Q3

REPORT INFORMATION
  Report Type: Spontaneous
  Country: US (occurrence: US)
  Receive Date: 20170216
  Receipt Date: 20170821
  Transmission Date: 20171127
  Serious: No
  Sender: FDA-Public Use
  Company Number: US-PFIZER INC-2017064249

PATIENT
  Age: 55 Year
  Sex: Male

DRUGS (1)
  1. XELJANZ [Suspect]
     Active Substance: TOFACITINIB CITRATE
     Indication: TOXIC GOITRE
     Dosage: 5 MG, 2X/DAY(BID)
     Route: 048
     Dates: start: 20161104, end: 20170731

REACTIONS (3)
  - Rash [Unknown]
  - Product use in unapproved indication [Unknown]
  - Treatment failure [Unknown]

NARRATIVE: CASE EVENT DATE: 20170210
